FAERS Safety Report 20863319 (Version 1)
Quarter: 2022Q2

REPORT INFORMATION
  Report Type: Spontaneous
  Country: US (occurrence: None)
  Receive Date: 20220522
  Receipt Date: 20220522
  Transmission Date: 20220721
  Serious: Yes (Other)
  Sender: FDA-Public Use
  Company Number: None

PATIENT
  Age: 54 Year
  Sex: Female
  Weight: 54.9 kg

DRUGS (4)
  1. XYZAL [Suspect]
     Active Substance: LEVOCETIRIZINE DIHYDROCHLORIDE
     Indication: Seasonal allergy
     Dosage: OTHER QUANTITY : 1 TABLET(S);?FREQUENCY : DAILY;?
     Route: 048
     Dates: start: 20220503, end: 20220504
  2. CELEXA [Concomitant]
     Active Substance: CITALOPRAM HYDROBROMIDE
  3. One a day Womens vitamin daily [Concomitant]
  4. One Saw Palmetto tablet daily [Concomitant]

REACTIONS (9)
  - Nightmare [None]
  - Fall [None]
  - Seizure [None]
  - Head injury [None]
  - Cervical vertebral fracture [None]
  - Cervical vertebral fracture [None]
  - Back pain [None]
  - Neck pain [None]
  - Haemorrhage [None]

NARRATIVE: CASE EVENT DATE: 20220503
